FAERS Safety Report 10666125 (Version 1)
Quarter: 2014Q4

REPORT INFORMATION
  Report Type: Spontaneous
  Country: US (occurrence: US)
  Receive Date: 20141219
  Receipt Date: 20141219
  Transmission Date: 20150529
  Serious: Yes (Other)
  Sender: FDA-Public Use
  Company Number: US-ASTRAZENECA-2014SE95779

PATIENT
  Age: 717 Month
  Sex: Female
  Weight: 68.9 kg

DRUGS (6)
  1. CRESTOR [Suspect]
     Active Substance: ROSUVASTATIN CALCIUM
     Indication: BLOOD CHOLESTEROL ABNORMAL
     Route: 048
     Dates: start: 2003
  2. PROTEIN DRINK [Concomitant]
  3. LISINOPRIL. [Suspect]
     Active Substance: LISINOPRIL
     Indication: BLOOD PRESSURE ABNORMAL
     Route: 048
     Dates: start: 1998
  4. CRESTOR [Suspect]
     Active Substance: ROSUVASTATIN CALCIUM
     Indication: CARDIAC DISORDER
     Route: 048
     Dates: start: 2003
  5. NEXIUM [Suspect]
     Active Substance: ESOMEPRAZOLE MAGNESIUM
     Indication: GASTROOESOPHAGEAL REFLUX DISEASE
     Route: 048
     Dates: start: 2004
  6. FISH OIL [Concomitant]
     Active Substance: FISH OIL
     Route: 048

REACTIONS (3)
  - Blood cholesterol abnormal [Unknown]
  - Gastrooesophageal reflux disease [Unknown]
  - Barrett^s oesophagus [Unknown]

NARRATIVE: CASE EVENT DATE: 200808
